FAERS Safety Report 9747744 (Version 3)
Quarter: 2013Q4

REPORT INFORMATION
  Report Type: Spontaneous
  Country: JP (occurrence: JP)
  Receive Date: 20131212
  Receipt Date: 20131219
  Transmission Date: 20140711
  Serious: Yes (Hospitalization)
  Sender: FDA-Public Use
  Company Number: JP-ROCHE-1265871

PATIENT
  Age: 79 Year
  Sex: Male
  Weight: 56 kg

DRUGS (23)
  1. AVASTIN [Suspect]
     Indication: COLON CANCER METASTATIC
     Route: 041
     Dates: start: 20121220, end: 20130221
  2. AVASTIN [Suspect]
     Indication: COLON CANCER METASTATIC
     Route: 041
     Dates: start: 20130418, end: 20130711
  3. ELPLAT [Suspect]
     Indication: COLON CANCER METASTATIC
     Route: 041
     Dates: start: 20121220
  4. 5-FU [Concomitant]
     Indication: COLON CANCER METASTATIC
     Route: 040
     Dates: start: 20121220, end: 20130711
  5. 5-FU [Concomitant]
     Indication: COLON CANCER METASTATIC
     Route: 041
     Dates: start: 20121220, end: 20130711
  6. 5-FU [Concomitant]
     Indication: COLON CANCER METASTATIC
     Route: 040
     Dates: start: 20130523, end: 20130711
  7. 5-FU [Concomitant]
     Indication: COLON CANCER METASTATIC
     Route: 041
     Dates: start: 20130523, end: 20130711
  8. CALCIUM LEVOFOLINATE [Concomitant]
     Indication: COLON CANCER METASTATIC
     Route: 041
     Dates: start: 20121220, end: 20130711
  9. CALCIUM LEVOFOLINATE [Concomitant]
     Indication: COLON CANCER
     Route: 041
     Dates: start: 20130523, end: 20130711
  10. AVOLVE [Concomitant]
     Route: 048
  11. NITOROL R [Concomitant]
     Route: 048
  12. STOMARCON [Concomitant]
     Route: 048
  13. CRESTOR [Concomitant]
     Route: 048
  14. NERIPROCT [Concomitant]
     Route: 054
  15. CALONAL [Concomitant]
     Indication: PYREXIA
     Route: 048
  16. PURSENNID [Concomitant]
     Indication: CONSTIPATION
     Route: 048
  17. MAGLAX [Concomitant]
     Route: 048
  18. FEBURIC [Concomitant]
     Route: 048
  19. EXFORGE [Concomitant]
     Route: 048
  20. GRANISETRON HYDROCHLORIDE [Concomitant]
     Indication: COLON CANCER METASTATIC
     Route: 041
     Dates: start: 20121220, end: 20130711
  21. DEXART [Concomitant]
     Indication: COLON CANCER METASTATIC
     Route: 041
     Dates: start: 20121220, end: 20130711
  22. CARVEDILOL [Concomitant]
     Dosage: DRUG REPORTED : ANISTO
     Route: 048
  23. ENALAPRIL MALEATE [Concomitant]
     Dosage: DRUG REPORTED CALNATE
     Route: 048

REACTIONS (2)
  - Interstitial lung disease [Recovering/Resolving]
  - Hypoaesthesia [Not Recovered/Not Resolved]
